FAERS Safety Report 20247118 (Version 1)
Quarter: 2021Q4

REPORT INFORMATION
  Report Type: Report from Study
  Country: CR (occurrence: CR)
  Receive Date: 20211229
  Receipt Date: 20211229
  Transmission Date: 20220303
  Serious: Yes (Life-Threatening, Other)
  Sender: FDA-Public Use
  Company Number: CR-NOVARTISPH-NVSC2021CR298244

PATIENT
  Age: 66 Year
  Sex: Male

DRUGS (2)
  1. EXFORGE [Suspect]
     Active Substance: AMLODIPINE BESYLATE\VALSARTAN
     Indication: Product used for unknown indication
     Dosage: UNK (5/320 MG)
     Route: 065
  2. EXFORGE [Suspect]
     Active Substance: AMLODIPINE BESYLATE\VALSARTAN
     Dosage: UNK (10/320 MG)
     Route: 065
     Dates: end: 202109

REACTIONS (3)
  - Cardiac arrest [Unknown]
  - Vein disorder [Unknown]
  - Drug intolerance [Unknown]
